FAERS Safety Report 4669001-2 (Version None)
Quarter: 2005Q2

REPORT INFORMATION
  Report Type: 
  Country: None (occurrence: None)
  Receive Date: 20050523
  Receipt Date: 20031119
  Transmission Date: 20051028
  Serious: Yes (Death, Hospitalization, Other)
  Sender: FDA-Public Use
  Company Number: US-BRISTOL-MYERS SQUIBB COMPANY-12439626

PATIENT
  Sex: Female

DRUGS (1)
  1. SERZONE [Suspect]
     Indication: DEPRESSION
     Dosage: DURATION EXCEEDED SIX MONTHS RX FILL DATES BETWEEN 04-JUN-1999 AND 03-JUN-2000
     Dates: start: 19990604, end: 20000614

REACTIONS (11)
  - ABDOMINAL PAIN LOWER [None]
  - ANOREXIA [None]
  - CONFUSIONAL STATE [None]
  - DEATH [None]
  - DIZZINESS [None]
  - HEPATIC ENZYME INCREASED [None]
  - HEPATOTOXICITY [None]
  - MALAISE [None]
  - NAUSEA [None]
  - VISUAL DISTURBANCE [None]
  - VOMITING [None]
